FAERS Safety Report 5160016-7 (Version None)
Quarter: 2006Q4

REPORT INFORMATION
  Report Type: 
  Country: None (occurrence: None)
  Receive Date: 20061129
  Receipt Date: 20060705
  Transmission Date: 20070319
  Serious: No
  Sender: FDA-Public Use
  Company Number: US-GLAXOSMITHKLINE-A0611160A

PATIENT
  Age: 53 Year
  Sex: Male

DRUGS (6)
  1. WELLBUTRIN SR [Suspect]
     Indication: DEPRESSION
     Dosage: 150MG PER DAY
     Route: 048
  2. WELLBUTRIN XL [Suspect]
     Indication: DEPRESSION
     Dosage: 150MG PER DAY
     Route: 048
     Dates: start: 20040101
  3. TRAZODONE HCL [Concomitant]
  4. KLONOPIN [Concomitant]
  5. DEXEDRINE [Concomitant]
  6. ACTIFED [Concomitant]

REACTIONS (1)
  - BALANCE DISORDER [None]
